FAERS Safety Report 7742815-8 (Version None)
Quarter: 2011Q3

REPORT INFORMATION
  Report Type: 
  Country: None (occurrence: None)
  Receive Date: 20110912
  Receipt Date: 20110902
  Transmission Date: 20111222
  Serious: Yes (Other)
  Sender: FDA-Public Use
  Company Number: JP-JNJFOC-20110902914

PATIENT

DRUGS (2)
  1. RISPERDAL [Suspect]
     Route: 048
  2. RISPERDAL [Suspect]
     Indication: PRODUCT USED FOR UNKNOWN INDICATION
     Dosage: ADJUSTED DOSES
     Route: 048
     Dates: start: 20080101

REACTIONS (4)
  - DYSKINESIA [None]
  - TONGUE DISORDER [None]
  - MUSCULOSKELETAL STIFFNESS [None]
  - DEFORMITY [None]
